FAERS Safety Report 5230504-3 (Version None)
Quarter: 2007Q1

REPORT INFORMATION
  Report Type: 
  Country: None (occurrence: None)
  Receive Date: 20070202
  Receipt Date: 20070122
  Transmission Date: 20070707
  Serious: Yes (Hospitalization)
  Sender: FDA-Public Use
  Company Number: 2007-00160

PATIENT
  Age: 70 Year
  Sex: Male

DRUGS (3)
  1. VELCADE [Suspect]
     Indication: DRUG USE FOR UNKNOWN INDICATION
     Dosage: INTRAVENOUS
     Route: 042
  2. THALIDOMIDE [Concomitant]
  3. CORTISONE ACETATE [Concomitant]

REACTIONS (3)
  - AMYOTROPHY [None]
  - DIARRHOEA [None]
  - NEUROPATHY PERIPHERAL [None]
